FAERS Safety Report 5044855-9 (Version None)
Quarter: 2006Q3

REPORT INFORMATION
  Report Type: 
  Country: None (occurrence: None)
  Receive Date: 20060707
  Receipt Date: 20060307
  Transmission Date: 20061208
  Serious: Yes (Life-Threatening)
  Sender: FDA-Public Use
  Company Number: JP-BRISTOL-MYERS SQUIBB COMPANY-13309869

PATIENT
  Age: 56 Year
  Sex: Male

DRUGS (10)
  1. VEPESID [Suspect]
     Indication: STEM CELL TRANSPLANT
     Route: 041
     Dates: start: 20001128, end: 20001130
  2. ENDOXAN [Suspect]
     Indication: LYMPHOMA
     Route: 042
     Dates: start: 19970701
  3. NIDRAN [Suspect]
     Indication: STEM CELL TRANSPLANT
     Route: 042
     Dates: start: 20001127, end: 20001127
  4. CYLOCIDE [Suspect]
     Indication: STEM CELL TRANSPLANT
     Route: 042
     Dates: start: 20001127, end: 20001130
  5. TESPAMIN [Suspect]
     Indication: STEM CELL TRANSPLANT
     Route: 042
     Dates: start: 20001201, end: 20001202
  6. RANDA [Suspect]
     Indication: LYMPHOMA
     Route: 042
     Dates: start: 20000701
  7. DECADRON [Suspect]
     Indication: LYMPHOMA
     Route: 042
     Dates: start: 20000701
  8. ADRIACIN [Concomitant]
     Route: 042
     Dates: start: 19990701
  9. ONCOVIN [Concomitant]
     Route: 042
     Dates: start: 19970701
  10. PREDONINE [Concomitant]
     Route: 042
     Dates: start: 19970701

REACTIONS (2)
  - MYELODYSPLASTIC SYNDROME [None]
  - TREATMENT RELATED SECONDARY MALIGNANCY [None]
